FAERS Safety Report 14684141 (Version 2)
Quarter: 2018Q2

REPORT INFORMATION
  Report Type: Report from Study
  Country: BR (occurrence: BR)
  Receive Date: 20180327
  Receipt Date: 20180622
  Transmission Date: 20180711
  Serious: Yes (Death, Other)
  Sender: FDA-Public Use
  Company Number: PHHY2018BR051596

PATIENT
  Age: 92 Year
  Sex: Female
  Weight: 44 kg

DRUGS (2)
  1. EXELON PATCH [Suspect]
     Active Substance: RIVASTIGMINE
     Dosage: 0.5 DF, QD
     Route: 062
  2. EXELON PATCH [Suspect]
     Active Substance: RIVASTIGMINE
     Indication: MEMORY IMPAIRMENT
     Dosage: UNK, QD
     Route: 062

REACTIONS (8)
  - Pneumonia [Recovered/Resolved]
  - Weight decreased [Recovered/Resolved]
  - Drug-induced liver injury [Recovered/Resolved]
  - Asthenia [Recovered/Resolved]
  - Death [Fatal]
  - Hypophagia [Recovered/Resolved]
  - Wrong technique in product usage process [Unknown]
  - Drug prescribing error [Unknown]
